FAERS Safety Report 5676123-6 (Version None)
Quarter: 2008Q1

REPORT INFORMATION
  Report Type: 
  Country: None (occurrence: None)
  Receive Date: 20080321
  Receipt Date: 20080313
  Transmission Date: 20080703
  Serious: Yes (Life-Threatening)
  Sender: FDA-Public Use
  Company Number: IT-TEVA-168692ISR

PATIENT
  Sex: Female

DRUGS (2)
  1. AMOXICILLIN [Suspect]
  2. PARACETAMOL [Suspect]

REACTIONS (3)
  - ACQUIRED EPIDERMOLYSIS BULLOSA [None]
  - DISSEMINATED INTRAVASCULAR COAGULATION [None]
  - RENAL FAILURE [None]
